FAERS Safety Report 21788776 (Version 4)
Quarter: 2023Q4

REPORT INFORMATION
  Report Type: Spontaneous
  Country: US (occurrence: US)
  Receive Date: 20221228
  Receipt Date: 20231206
  Transmission Date: 20240109
  Serious: Yes (Other)
  Sender: FDA-Public Use
  Company Number: US-PFIZER INC-202201394389

PATIENT
  Age: 68 Year
  Sex: Male
  Weight: 75.75 kg

DRUGS (4)
  1. BOSULIF [Suspect]
     Active Substance: BOSUTINIB MONOHYDRATE
     Indication: Chronic myeloid leukaemia
     Dosage: TAKE 1 TABLET (100 MG) BY MOUTH TWICE DAILY
     Route: 048
  2. PROTONIX [Suspect]
     Active Substance: PANTOPRAZOLE SODIUM
     Dosage: UNK
  3. PLAVIX [Suspect]
     Active Substance: CLOPIDOGREL BISULFATE
     Dosage: UNK
  4. SPRYCEL [Concomitant]
     Active Substance: DASATINIB
     Dosage: UNK

REACTIONS (7)
  - Stent placement [Unknown]
  - Flatulence [Unknown]
  - Nausea [Unknown]
  - Abdominal pain [Unknown]
  - Abdominal distension [Unknown]
  - Arthropathy [Unknown]
  - Off label use [Unknown]
